FAERS Safety Report 14452038 (Version 2)
Quarter: 2019Q1

REPORT INFORMATION
  Report Type: Spontaneous
  Country: US (occurrence: US)
  Receive Date: 20180129
  Receipt Date: 20190204
  Transmission Date: 20190417
  Serious: No
  Sender: FDA-Public Use
  Company Number: US-ABBVIE-17K-163-2135912-00

PATIENT
  Sex: Male

DRUGS (1)
  1. HUMIRA [Suspect]
     Active Substance: ADALIMUMAB
     Indication: RHEUMATOID ARTHRITIS
     Route: 058

REACTIONS (9)
  - Fatigue [Unknown]
  - Stress [Unknown]
  - Mood altered [Unknown]
  - Hypertension [Unknown]
  - Weight bearing difficulty [Unknown]
  - Arthropathy [Unknown]
  - Swelling [Unknown]
  - Occupational physical problem [Unknown]
  - Anger [Unknown]
